FAERS Safety Report 19059101 (Version 1)
Quarter: 2021Q1

REPORT INFORMATION
  Report Type: Report from Study
  Country: ZA (occurrence: ZA)
  Receive Date: 20210325
  Receipt Date: 20210325
  Transmission Date: 20210420
  Serious: Yes (Other)
  Sender: FDA-Public Use
  Company Number: NVSC2021ZA065609

PATIENT
  Sex: Male

DRUGS (6)
  1. ENTRESTO [Suspect]
     Active Substance: SACUBITRIL\VALSARTAN
     Indication: CARDIAC FAILURE
     Dosage: 50 MG, BID
     Route: 048
  2. SPIRONOLACTONE. [Suspect]
     Active Substance: SPIRONOLACTONE
     Indication: PRODUCT USED FOR UNKNOWN INDICATION
     Dosage: UNK(TRADE NAME: SPIRECTIN)
     Route: 065
  3. SLOW K [Suspect]
     Active Substance: POTASSIUM CHLORIDE
     Indication: CARDIAC FAILURE
     Dosage: 1 DF, BID
     Route: 048
  4. CARDICOR [Concomitant]
     Active Substance: BISOPROLOL
     Indication: PRODUCT USED FOR UNKNOWN INDICATION
     Dosage: 5 MG, BID
     Route: 065
  5. SLOW MAG [Concomitant]
     Active Substance: MAGNESIUM CHLORIDE
     Indication: PRODUCT USED FOR UNKNOWN INDICATION
     Dosage: 1 DF, BID
     Route: 065
  6. PURESIS [Concomitant]
     Active Substance: FUROSEMIDE
     Indication: PRODUCT USED FOR UNKNOWN INDICATION
     Dosage: 300 MG, BID
     Route: 065

REACTIONS (9)
  - Mitral valve incompetence [Unknown]
  - Extrasystoles [Unknown]
  - Blood pressure abnormal [Unknown]
  - Right ventricular enlargement [Unknown]
  - Adverse drug reaction [Unknown]
  - Diastolic dysfunction [Unknown]
  - Tricuspid valve incompetence [Unknown]
  - Ejection fraction abnormal [Unknown]
  - Left ventricular hypertrophy [Unknown]
